FAERS Safety Report 24141873 (Version 3)
Quarter: 2024Q4

REPORT INFORMATION
  Report Type: Spontaneous
  Country: IN (occurrence: IN)
  Receive Date: 20240726
  Receipt Date: 20241231
  Transmission Date: 20250114
  Serious: Yes (Other)
  Sender: PFIZER
  Company Number: IN-PFIZER INC-PV202400070293

PATIENT
  Age: 55 Year
  Sex: Male

DRUGS (6)
  1. LORLATINIB [Suspect]
     Active Substance: LORLATINIB
     Indication: Non-small cell lung cancer stage IV
     Dosage: 100 MG, 1X/DAY
     Route: 048
     Dates: start: 20240223
  2. LORLATINIB [Suspect]
     Active Substance: LORLATINIB
     Dosage: 100 MG, 1X/DAY (X 1 MONTH)
     Route: 048
     Dates: start: 20240425
  3. ASPIRIN\ATORVASTATIN [Concomitant]
     Active Substance: ASPIRIN\ATORVASTATIN
     Dosage: UNK
  4. PANTOPRAZOLE SODIUM [Concomitant]
     Active Substance: PANTOPRAZOLE SODIUM
     Dosage: UNK
  5. DABIGATRAN [Concomitant]
     Active Substance: DABIGATRAN
     Dosage: UNK
  6. PENTIDS [Concomitant]
     Active Substance: PENICILLIN G POTASSIUM
     Dosage: 400 MG, 2X/DAY (FOR 2 WEEKS)

REACTIONS (6)
  - Cerebral infarction [Unknown]
  - Blood alkaline phosphatase increased [Unknown]
  - Blood cholesterol increased [Unknown]
  - Very low density lipoprotein increased [Unknown]
  - Total cholesterol/HDL ratio increased [Unknown]
  - Pleural effusion [Unknown]

NARRATIVE: CASE EVENT DATE: 20240101
